FAERS Safety Report 4403451-4 (Version None)
Quarter: 2004Q3

REPORT INFORMATION
  Report Type: 
  Country: None (occurrence: None)
  Receive Date: 20040716
  Receipt Date: 20040701
  Transmission Date: 20050211
  Serious: Yes (Death, Hospitalization)
  Sender: FDA-Public Use
  Company Number: USA-2004-0013881

PATIENT
  Age: 76 Year
  Sex: Male
  Weight: 82.8 kg

DRUGS (9)
  1. MORPHINE SULFATE [Suspect]
     Indication: CHEST PAIN
     Dosage: 2 MG, PRN, INTRAVENOUS
     Route: 042
  2. ESMOLOL HCL [Suspect]
     Indication: TACHYCARDIA
     Dosage: 250 MG, INTRAVENOUS
     Route: 042
  3. ANGIOMAX [Suspect]
  4. ABCIXIMAB (ABCIXIMAB) [Suspect]
  5. LORAZEPAM [Concomitant]
  6. NITROGLYCERIN ^AL^ (GLYCERYL TRINITRATE) [Concomitant]
  7. HALOPERIDOL [Concomitant]
  8. THIAMINE (THIAMINE) [Concomitant]
  9. PIPERACILLIN SODIUM W/TAZOABCTAM SODIUM (PIPERACILLIN SODIUM, TAZOBACT [Concomitant]

REACTIONS (17)
  - ALCOHOL WITHDRAWAL SYNDROME [None]
  - ASPIRATION [None]
  - BRADYCARDIA [None]
  - CARDIAC FAILURE [None]
  - ELECTROMECHANICAL DISSOCIATION [None]
  - GENERAL PHYSICAL HEALTH DETERIORATION [None]
  - GRAFT COMPLICATION [None]
  - HYPOTENSION [None]
  - MYOCARDIAL INFARCTION [None]
  - PNEUMONIA [None]
  - PULSE ABSENT [None]
  - PUNCTURE SITE HAEMORRHAGE [None]
  - RESPIRATORY ACIDOSIS [None]
  - RESPIRATORY FAILURE [None]
  - VASCULAR BYPASS GRAFT [None]
  - VENTRICULAR FIBRILLATION [None]
  - VENTRICULAR TACHYCARDIA [None]
